FAERS Safety Report 5326014-5 (Version None)
Quarter: 2007Q2

REPORT INFORMATION
  Report Type: 
  Country: None (occurrence: None)
  Receive Date: 20070516
  Receipt Date: 20070504
  Transmission Date: 20071010
  Serious: Yes (Death)
  Sender: FDA-Public Use
  Company Number: US-JNJFOC-20050400374

PATIENT
  Age: 60 Year
  Sex: Male

DRUGS (5)
  1. REMICADE [Suspect]
     Indication: CROHN'S DISEASE
     Route: 042
  2. TYSABRI [Suspect]
     Dosage: 5 DOSES
  3. TYSABRI [Suspect]
     Indication: CROHN'S DISEASE
     Dosage: 3 INFUSIONS
  4. AZATHIOPRINE [Suspect]
     Indication: CROHN'S DISEASE
  5. IMMUNOSUPPRESSANT DRUGS [Concomitant]

REACTIONS (1)
  - PROGRESSIVE MULTIFOCAL LEUKOENCEPHALOPATHY [None]
